FAERS Safety Report 6816852-1 (Version None)
Quarter: 2010Q2

REPORT INFORMATION
  Report Type: 
  Country: None (occurrence: None)
  Receive Date: 20100630
  Receipt Date: 20100623
  Transmission Date: 20101027
  Serious: Yes (Death, Life-Threatening, Other)
  Sender: FDA-Public Use
  Company Number: 2010JP003058

PATIENT
  Age: 36 Year
  Sex: Female

DRUGS (3)
  1. PROGRAF [Suspect]
     Indication: TRANSPLANT
     Dosage: 1 MG, UID/QD; IV DRIP
     Route: 041
     Dates: start: 20100412, end: 20100510
  2. PROGRAF [Suspect]
     Indication: TRANSPLANT
     Dosage: 0.25 MG, BID, ORAL; 1.5 MG, BID, ORAL
     Route: 048
     Dates: start: 20100411, end: 20100411
  3. PROGRAF [Suspect]
     Indication: TRANSPLANT
     Dosage: 0.25 MG, BID, ORAL; 1.5 MG, BID, ORAL
     Route: 048
     Dates: start: 20100511, end: 20100518

REACTIONS (10)
  - ADENOVIRUS INFECTION [None]
  - CONTINUOUS HAEMODIAFILTRATION [None]
  - CYTOMEGALOVIRUS INFECTION [None]
  - ENCEPHALOPATHY [None]
  - ENTEROCOLITIS [None]
  - HEPATIC FUNCTION ABNORMAL [None]
  - IMMUNOSUPPRESSANT DRUG LEVEL INCREASED [None]
  - PNEUMONIA [None]
  - SEPTIC SHOCK [None]
  - SYSTEMIC CANDIDA [None]
